FAERS Safety Report 7869378 (Version 10)
Quarter: 2012Q4

REPORT INFORMATION
  Report Type: 
  Country: CA (occurrence: CA)
  Receive Date: 20110324
  Receipt Date: 20121109
  Transmission Date: 20130627
  Serious: Yes (Hospitalization, Other)
  Sender: FDA-Public Use
  Company Number: PHHY2009CA57000

PATIENT
  Sex: Male

DRUGS (4)
  1. SANDOSTATIN LAR [Suspect]
     Indication: CARCINOID TUMOUR
     Dosage: 40 mg every 4 weeks
     Route: 030
     Dates: start: 20060912
  2. SANDOSTATIN LAR [Suspect]
     Dosage: 40 mg, QMO
     Route: 030
  3. SANDOSTATIN LAR [Suspect]
     Dosage: 30 mg, every four weeks
     Route: 030
  4. SANDOSTATIN LAR [Suspect]
     Dosage: 40 mg, every 4 weeks
     Route: 030

REACTIONS (17)
  - Subcutaneous abscess [Unknown]
  - Anal fistula [Unknown]
  - Oral fungal infection [Recovered/Resolved]
  - Infection [Unknown]
  - Blood pressure decreased [Unknown]
  - Fluid retention [Recovered/Resolved]
  - Anaemia [Unknown]
  - Pallor [Unknown]
  - Haemoglobin decreased [Unknown]
  - Fatigue [Not Recovered/Not Resolved]
  - Injection site haemorrhage [Recovered/Resolved]
  - White blood cell count decreased [Unknown]
  - Weight decreased [Unknown]
  - Incorrect dose administered [Unknown]
  - Body temperature increased [Unknown]
  - Decreased appetite [Unknown]
  - Diarrhoea [Unknown]
